FAERS Safety Report 6448768-7 (Version None)
Quarter: 2009Q4

REPORT INFORMATION
  Report Type: 
  Country: None (occurrence: None)
  Receive Date: 20091120
  Receipt Date: 20090911
  Transmission Date: 20100525
  Serious: No
  Sender: FDA-Public Use
  Company Number: US-KINGPHARMUSA00001-K200901145

PATIENT
  Age: 55 Year
  Sex: Male
  Weight: 86.168 kg

DRUGS (4)
  1. FLECTOR [Suspect]
     Indication: ARTHRALGIA
     Dosage: 1 PATCH, PRN
     Route: 061
     Dates: start: 20090701
  2. FLOMAX [Concomitant]
     Dosage: UNK
  3. ADVAIR DISKUS 100/50 [Concomitant]
     Dosage: UNK
  4. ALLEGRA [Concomitant]
     Dosage: UNK

REACTIONS (1)
  - TINNITUS [None]
